FAERS Safety Report 5342304-4 (Version None)
Quarter: 2007Q2

REPORT INFORMATION
  Report Type: 
  Country: None (occurrence: None)
  Receive Date: 20070601
  Receipt Date: 20070508
  Transmission Date: 20071010
  Serious: Yes (Death)
  Sender: FDA-Public Use
  Company Number: US-SANOFI-SYNTHELABO-A03200702921

PATIENT
  Sex: Female

DRUGS (3)
  1. EPIPEN [Concomitant]
     Indication: ALLERGY TO ARTHROPOD STING
     Dosage: UNK
     Route: 065
  2. ADVIL [Concomitant]
     Dosage: UNK
     Route: 065
  3. PLAVIX [Suspect]
     Indication: TRANSIENT ISCHAEMIC ATTACK
     Route: 048
     Dates: start: 20040101

REACTIONS (3)
  - CEREBROVASCULAR ACCIDENT [None]
  - HEMIPARESIS [None]
  - VISUAL DISTURBANCE [None]
